FAERS Safety Report 8815546 (Version 3)
Quarter: 2012Q4

REPORT INFORMATION
  Report Type: 
  Country: US (occurrence: US)
  Receive Date: 20120928
  Receipt Date: 20121205
  Transmission Date: 20130627
  Serious: Yes (Hospitalization, Other)
  Sender: FDA-Public Use
  Company Number: US-009507513-1202USA02455

PATIENT

DRUGS (3)
  1. FOSAMAX [Suspect]
     Indication: OSTEOPOROSIS
     Dosage: 70 mg, qw
     Route: 048
     Dates: start: 19960320, end: 20080101
  2. ASPIRIN [Concomitant]
     Indication: TRANSIENT ISCHAEMIC ATTACK
     Dosage: 81 mg, qd
  3. AGGRENOX [Concomitant]
     Indication: ESSENTIAL HYPERTENSION
     Dosage: UNK
     Dates: start: 2007

REACTIONS (58)
  - Femur fracture [Unknown]
  - Internal fixation of fracture [Unknown]
  - Medical device implantation [Unknown]
  - Knee arthroplasty [Unknown]
  - Knee arthroplasty [Unknown]
  - Spinal laminectomy [Unknown]
  - Eye operation [Unknown]
  - Cerebrovascular accident [Recovering/Resolving]
  - Supraventricular extrasystoles [Unknown]
  - Post procedural cellulitis [Recovering/Resolving]
  - Shoulder operation [Unknown]
  - Ventricular extrasystoles [Unknown]
  - Chest pain [Unknown]
  - Cystocele repair [Unknown]
  - Low turnover osteopathy [Unknown]
  - Endodontic procedure [Unknown]
  - Tooth extraction [Unknown]
  - Spondylolisthesis [Unknown]
  - Spinal osteoarthritis [Unknown]
  - Lumbar spinal stenosis [Unknown]
  - Synovial cyst [Unknown]
  - Joint effusion [Unknown]
  - Bronchitis [Unknown]
  - Rotator cuff syndrome [Unknown]
  - Periarthritis [Unknown]
  - Hyperlipidaemia [Unknown]
  - Osteoarthritis [Not Recovered/Not Resolved]
  - Large intestine polyp [Unknown]
  - Chronic obstructive pulmonary disease [Not Recovered/Not Resolved]
  - Upper limb fracture [Unknown]
  - Hiatus hernia [Unknown]
  - Macular degeneration [Unknown]
  - Bundle branch block right [Not Recovered/Not Resolved]
  - Osteopenia [Unknown]
  - Upper limb fracture [Unknown]
  - Upper limb fracture [Unknown]
  - Wrist fracture [Unknown]
  - Osteoarthritis [Unknown]
  - Antinuclear antibody positive [Unknown]
  - Drug intolerance [Unknown]
  - Drug intolerance [Unknown]
  - Eosinophilia [Recovered/Resolved]
  - Intervertebral disc degeneration [Unknown]
  - Paraesthesia [Unknown]
  - Dyspnoea exertional [Unknown]
  - Pyrexia [Unknown]
  - Neuropathy peripheral [Unknown]
  - Joint injury [Unknown]
  - Drug hypersensitivity [Unknown]
  - Dyspepsia [Unknown]
  - Back pain [Unknown]
  - Myalgia [Unknown]
  - Muscle spasms [Unknown]
  - Gastrooesophageal reflux disease [Unknown]
  - Blood glucose abnormal [Unknown]
  - Renal failure chronic [Unknown]
  - Urinary tract infection [Unknown]
  - Nephrolithiasis [Unknown]
